FAERS Safety Report 18747887 (Version 3)
Quarter: 2021Q1

REPORT INFORMATION
  Report Type: Report from Study
  Country: CA (occurrence: CA)
  Receive Date: 20210115
  Receipt Date: 20210212
  Transmission Date: 20210419
  Serious: Yes (Other)
  Sender: FDA-Public Use
  Company Number: CA-NALPROPION PHARMACEUTICALS INC.-2020-011953

PATIENT

DRUGS (11)
  1. CONTRAVE [Suspect]
     Active Substance: BUPROPION HYDROCHLORIDE\NALTREXONE HYDROCHLORIDE
     Indication: WEIGHT CONTROL
     Dosage: 90/8 MILLIGRAM, 1 TABLET DAILY, STARTED APPROXIMATELY ON 23/NOV/2020 OR 24/NOV/2020
     Route: 048
     Dates: start: 202011, end: 2020
  2. CONTRAVE [Suspect]
     Active Substance: BUPROPION HYDROCHLORIDE\NALTREXONE HYDROCHLORIDE
     Dosage: 90/8 MILLIGRAM, 1 PILL WITH BREAKFAST AND 1 PILL WITH SUPPER
     Route: 048
     Dates: end: 20210106
  3. CONTRAVE [Suspect]
     Active Substance: BUPROPION HYDROCHLORIDE\NALTREXONE HYDROCHLORIDE
     Dosage: 90/8 MILLIGRAM, 1 MORNING AND SUPPER
     Route: 048
     Dates: start: 20201227, end: 20201229
  4. CONTRAVE [Suspect]
     Active Substance: BUPROPION HYDROCHLORIDE\NALTREXONE HYDROCHLORIDE
     Dosage: 90/8 MILLIGRAM, 1 TABLET DAILY MORNING
     Route: 048
     Dates: start: 20201230
  5. TYLENOL ARTHRITIS PAIN [Concomitant]
     Active Substance: ACETAMINOPHEN
     Indication: ANALGESIC THERAPY
     Dosage: 2 TABLET PRN (AS NEEDED)
     Route: 048
  6. CONTRAVE [Suspect]
     Active Substance: BUPROPION HYDROCHLORIDE\NALTREXONE HYDROCHLORIDE
     Dosage: 90/8 MILLIGRAM, 2 TABLETS DAILY
     Route: 048
     Dates: start: 2020, end: 20201203
  7. HYDROCHLOROTHIAZIDE. [Concomitant]
     Active Substance: HYDROCHLOROTHIAZIDE
     Indication: HYPERTENSION
     Dosage: FREQUENCY: DAILY (25 MG)
     Route: 048
  8. CARDIZEM [Concomitant]
     Active Substance: DILTIAZEM HYDROCHLORIDE
     Indication: HYPERTENSION
     Dosage: FREQUENCY: DAILY (120 MG)
     Route: 048
  9. CLARITINE [Concomitant]
     Active Substance: LORATADINE
     Indication: HYPERSENSITIVITY
     Dosage: PRN (AS NEEDED) (10 MG)
     Route: 048
  10. CONTRAVE [Suspect]
     Active Substance: BUPROPION HYDROCHLORIDE\NALTREXONE HYDROCHLORIDE
     Dosage: 90/8 MILLIGRAM, 1 TABLET TWICE DAILY
     Route: 048
     Dates: start: 20201220, end: 20201226
  11. CANDESARTAN. [Concomitant]
     Active Substance: CANDESARTAN
     Indication: HYPERTENSION
     Dosage: 8 MG, 2 IN 1 D
     Route: 048

REACTIONS (15)
  - Dry mouth [Recovering/Resolving]
  - Dizziness [Unknown]
  - Abnormal dreams [Not Recovered/Not Resolved]
  - Vertigo [Recovering/Resolving]
  - Dyspnoea exertional [Not Recovered/Not Resolved]
  - Nausea [Not Recovered/Not Resolved]
  - Insomnia [Not Recovered/Not Resolved]
  - Feeling abnormal [Unknown]
  - Hypertension [Recovered/Resolved]
  - Night sweats [Not Recovered/Not Resolved]
  - Limb injury [Unknown]
  - Headache [Not Recovered/Not Resolved]
  - Hyperhidrosis [Not Recovered/Not Resolved]
  - Fall [Unknown]
  - Therapy interrupted [Unknown]

NARRATIVE: CASE EVENT DATE: 2020
